FAERS Safety Report 8291164-0 (Version None)
Quarter: 2012Q2

REPORT INFORMATION
  Report Type: 
  Country: None (occurrence: None)
  Receive Date: 20120417
  Receipt Date: 20120412
  Transmission Date: 20120825
  Serious: Yes (Other)
  Sender: FDA-Public Use
  Company Number: DE-MERCK-1204DEU00040

PATIENT

DRUGS (1)
  1. CANCIDAS [Suspect]
     Route: 042

REACTIONS (1)
  - HEPATIC FAILURE [None]
